FAERS Safety Report 18506908 (Version 2)
Quarter: 2020Q4

REPORT INFORMATION
  Report Type: Spontaneous
  Country: US (occurrence: US)
  Receive Date: 20201116
  Receipt Date: 20201210
  Transmission Date: 20210114
  Serious: Yes (Hospitalization, Other)
  Sender: FDA-Public Use
  Company Number: US-PFIZER INC-2020285785

PATIENT
  Age: 60 Year
  Sex: Female
  Weight: 64.86 kg

DRUGS (3)
  1. LYRICA [Suspect]
     Active Substance: PREGABALIN
     Indication: NEUROPATHY PERIPHERAL
     Dosage: 50 MG
  2. LYRICA [Suspect]
     Active Substance: PREGABALIN
     Dosage: 300 MG, 2X/DAY
     Route: 048
     Dates: start: 2017
  3. TIROSINT-SOL [Concomitant]
     Active Substance: LEVOTHYROXINE SODIUM
     Indication: THYROID DISORDER
     Dosage: 75 UG

REACTIONS (10)
  - Speech disorder [Unknown]
  - Pain in extremity [Unknown]
  - Pneumonia staphylococcal [Unknown]
  - Septic shock [Unknown]
  - Oesophageal disorder [Unknown]
  - Muscle spasms [Unknown]
  - Eating disorder [Unknown]
  - Fall [Unknown]
  - Skin haemorrhage [Unknown]
  - Cachexia [Unknown]

NARRATIVE: CASE EVENT DATE: 2019
